FAERS Safety Report 6743469-X (Version None)
Quarter: 2010Q2

REPORT INFORMATION
  Report Type: 
  Country: None (occurrence: None)
  Receive Date: 20100527
  Receipt Date: 20100524
  Transmission Date: 20101027
  Serious: Yes (Hospitalization)
  Sender: FDA-Public Use
  Company Number: FR-ROXANE LABORATORIES, INC.-2010-RO-00628RO

PATIENT
  Age: 44 Year
  Sex: Male

DRUGS (2)
  1. METHADONE [Suspect]
     Indication: DRUG WITHDRAWAL MAINTENANCE THERAPY
     Dosage: 120 MG
  2. NALTREXONE HYDROCHLORIDE [Suspect]
     Indication: ALCOHOL ABUSE
     Dosage: 50 MG

REACTIONS (2)
  - DRUG WITHDRAWAL SYNDROME [None]
  - STRESS CARDIOMYOPATHY [None]
